FAERS Safety Report 5290264-7 (Version None)
Quarter: 2007Q2

REPORT INFORMATION
  Report Type: 
  Country: None (occurrence: None)
  Receive Date: 20070406
  Receipt Date: 20070404
  Transmission Date: 20071010
  Serious: Yes (Other)
  Sender: FDA-Public Use
  Company Number: GB-MERCK-0704GBR00028

PATIENT
  Age: 58 Year
  Sex: Male
  Weight: 112 kg

DRUGS (7)
  1. ZOCOR [Suspect]
     Route: 048
     Dates: start: 20070125, end: 20070127
  2. AMLODIPINE BESYLATE [Concomitant]
     Route: 048
     Dates: start: 20050301
  3. GLIPIZIDE [Concomitant]
     Route: 048
     Dates: start: 20041201
  4. METFORMIN [Concomitant]
     Route: 048
     Dates: start: 20070101
  5. MOXONIDINE [Concomitant]
     Route: 048
     Dates: start: 20060901
  6. ROSIGLITAZONE MALEATE [Concomitant]
     Route: 048
     Dates: start: 20070101
  7. VALSARTAN [Concomitant]
     Route: 048
     Dates: start: 20040901

REACTIONS (1)
  - NIGHTMARE [None]
